FAERS Safety Report 7828439-2 (Version None)
Quarter: 2011Q4

REPORT INFORMATION
  Report Type: 
  Country: None (occurrence: None)
  Receive Date: 20111020
  Receipt Date: 20110919
  Transmission Date: 20120403
  Serious: Yes (Hospitalization, Other)
  Sender: FDA-Public Use
  Company Number: US-BAYER-2010-004375

PATIENT
  Age: 27 Year
  Sex: Female
  Weight: 146 kg

DRUGS (43)
  1. DARVOCET [Concomitant]
  2. NITROFURANTOIN [Concomitant]
     Dosage: 100 MG, QD
  3. HYDROXYZINE HYDROCHLORIDE [Concomitant]
     Dosage: UNK
     Dates: start: 20081206
  4. DEMEROL [Concomitant]
  5. MORPHINE [Concomitant]
  6. DROSPIRENONE AND ETHINYL ESTRADIOL [Suspect]
     Indication: MENSTRUATION IRREGULAR
     Dosage: UNK
     Dates: start: 20090707, end: 20100201
  7. KLOR-CON [Concomitant]
     Dosage: 10 MEQ, QD
  8. PROCHLORPERAZINE [Concomitant]
  9. ROBINUL [Concomitant]
  10. FLUCONAZOLE [Concomitant]
     Dosage: UNK
     Dates: start: 20060721
  11. FEMCOM [Concomitant]
     Dosage: UNK
     Dates: start: 20090612, end: 20090707
  12. CYCLOBENZAPRINE [Concomitant]
  13. PROMETHAZINE [Concomitant]
  14. FERROUS SULFATE TAB [Concomitant]
     Dosage: UNK
     Dates: start: 20090430, end: 20090530
  15. OXYCODONE HCL AND ACETAMINOPHEN [Concomitant]
     Dosage: UNK
     Dates: start: 20090622
  16. AMOXICILLIN [Concomitant]
     Dosage: UNK
     Dates: start: 20091106, end: 20091115
  17. LORTAB [Concomitant]
  18. ZOFRAN [Concomitant]
  19. YASMIN [Suspect]
     Indication: ORAL CONTRACEPTION
     Dosage: UNK
     Dates: start: 20060614, end: 20060714
  20. YAZ [Suspect]
     Dosage: UNK
     Dates: start: 20090101, end: 20100101
  21. HYDROCODONE BITARTRATE AND ACETAMINOPHEN [Concomitant]
  22. NAPROXEN SODIUM [Concomitant]
     Dosage: UNK
     Dates: start: 20090430
  23. LEVSIN [Concomitant]
  24. YASMIN [Suspect]
     Dosage: UNK
     Dates: start: 20090701, end: 20100201
  25. PRENATAL PLUS IRON [Concomitant]
  26. BUPIVACAINE HCL [Concomitant]
  27. KEFZOL [Concomitant]
  28. REGLAN [Concomitant]
  29. MAXALT [Concomitant]
     Dosage: 10 MG, UNK
     Route: 048
  30. TESSALON [Concomitant]
     Dosage: 100 MG, UNK
     Route: 048
  31. NORETHINDRONE [Concomitant]
  32. PENICILLIN [Concomitant]
     Dosage: UNK
     Dates: start: 20060714, end: 20060718
  33. METFORMIN HCL [Concomitant]
  34. AMBIEN [Concomitant]
     Dosage: 10 MG, UNK
     Route: 048
  35. DESOXIMETASONE [Concomitant]
     Dosage: UNK
     Dates: start: 20090216
  36. AMOXICILLIN [Concomitant]
     Dosage: UNK
     Dates: start: 20100111
  37. ZOLPIDEM [Concomitant]
     Dosage: UNK
     Dates: start: 20091106, end: 20091206
  38. METHYLPREDNISOLONE [Concomitant]
  39. COUGH AND COLD PREPARATIONS [Concomitant]
  40. PHENERGAN HCL [Concomitant]
  41. VERSED [Concomitant]
  42. CEPHADYN [Concomitant]
     Dosage: 50 MG, UNK
     Route: 048
  43. FLEXERIL [Concomitant]
     Dosage: 10 MG, UNK
     Route: 048

REACTIONS (6)
  - CHOLECYSTITIS CHRONIC [None]
  - GALLBLADDER DISORDER [None]
  - INJURY [None]
  - PAIN [None]
  - CHOLELITHIASIS [None]
  - GALLBLADDER NON-FUNCTIONING [None]
